FAERS Safety Report 9815258 (Version 1)
Quarter: 2014Q1

REPORT INFORMATION
  Report Type: Spontaneous
  Country: DE (occurrence: DE)
  Receive Date: 20140114
  Receipt Date: 20140114
  Transmission Date: 20141002
  Serious: Yes (Life-Threatening, Other)
  Sender: FDA-Public Use
  Company Number: DE-AMGEN-DEUSP2014001805

PATIENT
  Age: 13 Year
  Sex: Male

DRUGS (1)
  1. ENBREL [Suspect]
     Indication: JUVENILE IDIOPATHIC ARTHRITIS
     Dosage: 0.4 MG/KG, 2X/WEEK
     Route: 058
     Dates: start: 20121219

REACTIONS (2)
  - Road traffic accident [Not Recovered/Not Resolved]
  - Coma [Not Recovered/Not Resolved]
